FAERS Safety Report 10243275 (Version 2)
Quarter: 2014Q3

REPORT INFORMATION
  Report Type: Spontaneous
  Country: DK (occurrence: DK)
  Receive Date: 20140618
  Receipt Date: 20140815
  Transmission Date: 20150326
  Serious: Yes (Death, Life-Threatening, Hospitalization, Disabling, Other)
  Sender: FDA-Public Use
  Company Number: DK-009507513-1406DNK007704

PATIENT
  Age: 62 Year
  Sex: Female
  Weight: 58.5 kg

DRUGS (4)
  1. CASPOFUNGIN ACETATE [Suspect]
     Active Substance: CASPOFUNGIN ACETATE
     Indication: PROPHYLAXIS
     Dosage: 50 MG DAILY, AFTER LOADING DOSE
     Route: 042
     Dates: start: 20130802, end: 20130818
  2. CASPOFUNGIN ACETATE [Suspect]
     Active Substance: CASPOFUNGIN ACETATE
     Indication: FUNGAL INFECTION
     Dosage: 70 MG, ONCE - LOADING DOSE, ON DAY 8
     Route: 042
     Dates: start: 20130802
  3. CASPOFUNGIN ACETATE [Suspect]
     Active Substance: CASPOFUNGIN ACETATE
     Indication: EVIDENCE BASED TREATMENT
  4. FLUCONAZOLE. [Suspect]
     Active Substance: FLUCONAZOLE
     Indication: PROPHYLAXIS
     Dosage: 200 MG DAILY, ON DAY 2
     Route: 048
     Dates: start: 20130727

REACTIONS (6)
  - Drug ineffective [Fatal]
  - Death [Fatal]
  - Infection [Not Recovered/Not Resolved]
  - Fungal infection [Fatal]
  - Cerebral infarction [Fatal]
  - Treatment failure [Not Recovered/Not Resolved]

NARRATIVE: CASE EVENT DATE: 201308
